FAERS Safety Report 6383724-9 (Version None)
Quarter: 2009Q3

REPORT INFORMATION
  Report Type: 
  Country: None (occurrence: None)
  Receive Date: 20090929
  Receipt Date: 20090929
  Transmission Date: 20100115
  Serious: Yes (Other)
  Sender: FDA-Public Use
  Company Number: None

PATIENT
  Age: 55 Year
  Sex: Female
  Weight: 8 kg

DRUGS (2)
  1. CETIRIZINE HYDROCHLORIDE [Suspect]
     Indication: HYPERSENSITIVITY
     Dosage: ONE 10 MG DAILY BUCCAL
     Route: 002
     Dates: start: 20090401, end: 20090915
  2. CETIRIZINE HYDROCHLORIDE [Suspect]
     Indication: NASAL CONGESTION
     Dosage: ONE 10 MG DAILY BUCCAL
     Route: 002
     Dates: start: 20090401, end: 20090915

REACTIONS (9)
  - DRUG DOSE OMISSION [None]
  - DRUG WITHDRAWAL SYNDROME [None]
  - EYE PAIN [None]
  - HYPERSENSITIVITY [None]
  - IMMUNE SYSTEM DISORDER [None]
  - INFLUENZA LIKE ILLNESS [None]
  - MALAISE [None]
  - RHINORRHOEA [None]
  - SNEEZING [None]
